FAERS Safety Report 18480651 (Version 1)
Quarter: 2020Q4

REPORT INFORMATION
  Report Type: Spontaneous
  Country: US (occurrence: US)
  Receive Date: 20201109
  Receipt Date: 20201109
  Transmission Date: 20210114
  Serious: Yes (Hospitalization)
  Sender: FDA-Public Use
  Company Number: None

PATIENT
  Age: 31 Year
  Sex: Female
  Weight: 111 kg

DRUGS (3)
  1. ALBUTEROL MDI [Concomitant]
     Active Substance: ALBUTEROL
  2. SPRINTEC [Concomitant]
     Active Substance: ETHINYL ESTRADIOL\NORGESTIMATE
  3. SUNOSI [Suspect]
     Active Substance: SOLRIAMFETOL
     Indication: SOMNOLENCE
     Route: 048
     Dates: start: 20201031, end: 20201107

REACTIONS (3)
  - Delusion of grandeur [None]
  - Mania [None]
  - Speech disorder [None]

NARRATIVE: CASE EVENT DATE: 20201108
